FAERS Safety Report 21593794 (Version 1)
Quarter: 2022Q4

REPORT INFORMATION
  Report Type: Spontaneous
  Country: US (occurrence: None)
  Receive Date: 20221114
  Receipt Date: 20221114
  Transmission Date: 20230112
  Serious: Yes (Other)
  Sender: FDA-Public Use
  Company Number: None

PATIENT
  Age: 55 Year
  Sex: Male
  Weight: 74.4 kg

DRUGS (13)
  1. BEBTELOVIMAB [Suspect]
     Active Substance: BEBTELOVIMAB
     Indication: COVID-19
     Route: 040
     Dates: start: 20221110, end: 20221110
  2. ANAGRELIDE [Concomitant]
     Active Substance: ANAGRELIDE
  3. APIXABAN [Concomitant]
     Active Substance: APIXABAN
  4. ATORVASTATIN [Concomitant]
     Active Substance: ATORVASTATIN
  5. CYCLOBENZAPRINE [Concomitant]
     Active Substance: CYCLOBENZAPRINE
  6. FAMOTIDINE [Concomitant]
     Active Substance: FAMOTIDINE
  7. FOLIC ACID [Concomitant]
     Active Substance: FOLIC ACID
  8. hydroxychloquine [Concomitant]
  9. LANSOPRAZOLE [Concomitant]
     Active Substance: LANSOPRAZOLE
  10. METHOTREXATE [Concomitant]
     Active Substance: METHOTREXATE
  11. METOPROLOL [Concomitant]
     Active Substance: METOPROLOL
  12. SUMATRIPTAN [Concomitant]
     Active Substance: SUMATRIPTAN
  13. TIZANIDINE [Concomitant]
     Active Substance: TIZANIDINE

REACTIONS (10)
  - Pain [None]
  - Hyperhidrosis [None]
  - Bradycardia [None]
  - Blood pressure immeasurable [None]
  - Chest pain [None]
  - Back pain [None]
  - Pallor [None]
  - Drug hypersensitivity [None]
  - Infusion related reaction [None]
  - Oxygen saturation decreased [None]

NARRATIVE: CASE EVENT DATE: 20221110
